FAERS Safety Report 21408243 (Version 3)
Quarter: 2023Q2

REPORT INFORMATION
  Report Type: Spontaneous
  Country: GB (occurrence: GB)
  Receive Date: 20221004
  Receipt Date: 20230526
  Transmission Date: 20230722
  Serious: Yes (Death, Other)
  Sender: FDA-Public Use
  Company Number: GB-MYLANLABS-2022M1110775

PATIENT
  Age: 70 Year
  Sex: Male

DRUGS (1)
  1. CLOZARIL [Suspect]
     Active Substance: CLOZAPINE
     Indication: Schizophrenia
     Dosage: UNK
     Route: 048
     Dates: start: 20080602

REACTIONS (4)
  - Oesophageal carcinoma [Fatal]
  - Haemoglobin decreased [Fatal]
  - COVID-19 [Fatal]
  - Red blood cell count decreased [Unknown]

NARRATIVE: CASE EVENT DATE: 20220927
